FAERS Safety Report 24681784 (Version 1)
Quarter: 2024Q4

REPORT INFORMATION
  Report Type: Report from Study
  Country: US (occurrence: US)
  Receive Date: 20241130
  Receipt Date: 20241130
  Transmission Date: 20250115
  Serious: Yes (Hospitalization)
  Sender: ROCHE
  Company Number: US-ROCHE-10000143633

PATIENT
  Age: 70 Year
  Sex: Female

DRUGS (1)
  1. ESBRIET [Suspect]
     Active Substance: PIRFENIDONE
     Indication: Idiopathic pulmonary fibrosis
     Dosage: TAKE 3 TABLET(S) BY MOUTH EACH MORNING, TAKE 2 TABLET(S) BY MOUTH EVERY AFTERNOON AND TAKE 3 TABLET(
     Route: 048

REACTIONS (3)
  - Memory impairment [Unknown]
  - Illness [Unknown]
  - Off label use [Unknown]
